FAERS Safety Report 7631711-2 (Version None)
Quarter: 2011Q3

REPORT INFORMATION
  Report Type: 
  Country: None (occurrence: None)
  Receive Date: 20110725
  Receipt Date: 20110712
  Transmission Date: 20111222
  Serious: Yes (Hospitalization)
  Sender: FDA-Public Use
  Company Number: JP-ELI_LILLY_AND_COMPANY-JP201106004842

PATIENT
  Age: 50 Year
  Sex: Female

DRUGS (6)
  1. MEDROL [Concomitant]
     Dosage: 16 MG, UNK
     Route: 048
     Dates: end: 20110621
  2. PREDNISOLONE [Concomitant]
     Dosage: 2 MG, UNK
     Route: 048
  3. FORTEO [Suspect]
     Indication: OSTEOPOROSIS
     Dosage: 20 UG, UNK
     Route: 058
     Dates: start: 20110524, end: 20110621
  4. ASPARA K [Concomitant]
     Dosage: 300 MG, TID
     Route: 048
  5. PROMAC [Concomitant]
     Dosage: 1 DF, UNK
     Route: 048
     Dates: end: 20110621
  6. METHOTREXATE [Concomitant]
     Dosage: UNK
     Route: 048
     Dates: end: 20110621

REACTIONS (1)
  - BREAST CANCER [None]
